FAERS Safety Report 17759335 (Version 2)
Quarter: 2020Q2

REPORT INFORMATION
  Report Type: Report from Study
  Country: CA (occurrence: CA)
  Receive Date: 20200508
  Receipt Date: 20200625
  Transmission Date: 20200714
  Serious: Yes (Other)
  Sender: FDA-Public Use
  Company Number: CA-BIOGEN-2019BI00758595

PATIENT
  Age: 46 Year
  Sex: Female

DRUGS (3)
  1. TYSABRI [Suspect]
     Active Substance: NATALIZUMAB
     Dosage: INFUSED FOR OVER 1 HR
     Route: 042
     Dates: start: 20191221
  2. TYSABRI [Suspect]
     Active Substance: NATALIZUMAB
     Indication: MULTIPLE SCLEROSIS
     Dosage: INFUSED FOR OVER 1 HR
     Route: 042
     Dates: start: 20131122, end: 20191221
  3. TYSABRI [Suspect]
     Active Substance: NATALIZUMAB
     Dosage: INFUSED FOR OVER 1 HR
     Route: 042
     Dates: start: 20191221, end: 20200420

REACTIONS (7)
  - Prescribed underdose [Not Recovered/Not Resolved]
  - Obstruction gastric [Recovered/Resolved]
  - Irritable bowel syndrome [Unknown]
  - Hypophagia [Recovered/Resolved]
  - Gastrooesophageal reflux disease [Recovered/Resolved]
  - Gastrointestinal polyp [Recovered/Resolved]
  - Gastrooesophageal sphincter insufficiency [Recovered/Resolved]

NARRATIVE: CASE EVENT DATE: 2019
